FAERS Safety Report 6022204-7 (Version None)
Quarter: 2008Q4

REPORT INFORMATION
  Report Type: 
  Country: None (occurrence: None)
  Receive Date: 20081229
  Receipt Date: 20081219
  Transmission Date: 20090506
  Serious: Yes (Congenital Anomaly)
  Sender: FDA-Public Use
  Company Number: FR-ABBOTT-03P-056-0244593-00

PATIENT
  Sex: Male

DRUGS (1)
  1. DEPAKENE [Suspect]
     Indication: DRUG EXPOSURE DURING PREGNANCY
     Dosage: 250MG AM AND 1250MG PM

REACTIONS (35)
  - ABNORMAL BEHAVIOUR [None]
  - AGGRESSION [None]
  - ANGER [None]
  - BRADYPHRENIA [None]
  - COGNITIVE DISORDER [None]
  - CONGENITAL FLAT FEET [None]
  - CONGENITAL NOSE MALFORMATION [None]
  - DEVELOPMENTAL COORDINATION DISORDER [None]
  - DEVELOPMENTAL DELAY [None]
  - DISORIENTATION [None]
  - DISTURBANCE IN ATTENTION [None]
  - DRUG EXPOSURE DURING PREGNANCY [None]
  - DYSMORPHISM [None]
  - EAR INFECTION [None]
  - ECHOLALIA [None]
  - EDUCATIONAL PROBLEM [None]
  - FATIGUE [None]
  - FEELING ABNORMAL [None]
  - FINE MOTOR DELAY [None]
  - FOOT DEFORMITY [None]
  - GROWTH RETARDATION [None]
  - HAIR GROWTH ABNORMAL [None]
  - HAND DEFORMITY [None]
  - HEARING IMPAIRED [None]
  - HYPERKERATOSIS [None]
  - HYPOREFLEXIA [None]
  - JOINT HYPEREXTENSION [None]
  - KNEE DEFORMITY [None]
  - MENTAL IMPAIRMENT [None]
  - MOTOR DYSFUNCTION [None]
  - MYOPIA [None]
  - NERVOUS SYSTEM DISORDER [None]
  - NEUROLOGICAL SYMPTOM [None]
  - SCROTAL DISORDER [None]
  - SUPERNUMERARY NIPPLE [None]
